FAERS Safety Report 5942917-2 (Version None)
Quarter: 2008Q4

REPORT INFORMATION
  Report Type: 
  Country: None (occurrence: None)
  Receive Date: 20081106
  Receipt Date: 20081103
  Transmission Date: 20090506
  Serious: Yes (Life-Threatening)
  Sender: FDA-Public Use
  Company Number: DE-BRISTOL-MYERS SQUIBB COMPANY-14393961

PATIENT
  Age: 4 Week
  Sex: Female
  Weight: 6 kg

DRUGS (1)
  1. AMPHOTERICIN B [Suspect]
     Indication: SEPSIS
     Dosage: DOSE AND FREQ:1X0.45MG,19JUN08;1X1MG,20-22JUN08
     Route: 042
     Dates: start: 20080619, end: 20080622

REACTIONS (1)
  - RHABDOMYOLYSIS [None]
